FAERS Safety Report 7442929-6 (Version None)
Quarter: 2011Q2

REPORT INFORMATION
  Report Type: 
  Country: None (occurrence: None)
  Receive Date: 20110428
  Receipt Date: 20110419
  Transmission Date: 20111010
  Serious: Yes (Hospitalization)
  Sender: FDA-Public Use
  Company Number: DE-ASTRAZENECA-2011SE22529

PATIENT
  Age: 74 Year
  Sex: Female
  Weight: 73 kg

DRUGS (12)
  1. PANTOPRAZOLE SODIUM [Concomitant]
     Indication: PROPHYLAXIS AGAINST GASTROINTESTINAL ULCER
     Route: 048
     Dates: start: 20100123, end: 20100125
  2. BERLOSIN [Concomitant]
     Indication: PAIN
     Route: 042
     Dates: start: 20100120, end: 20100120
  3. PRADAXA [Suspect]
     Route: 048
     Dates: start: 20100121, end: 20100122
  4. ZOFRAN [Concomitant]
     Indication: PROCEDURAL NAUSEA
     Dosage: 2 AMPULE/APPLICATION; DOSAGE UNKNOWN
     Route: 042
     Dates: start: 20100120, end: 20100120
  5. VOMEX A [Concomitant]
     Indication: PROCEDURAL NAUSEA
     Dosage: 1 AMPLUE/DAY; DOSAGE UNKNOWN
     Route: 042
     Dates: start: 20100120, end: 20100120
  6. ARCOXIA [Concomitant]
     Indication: PAIN
     Route: 048
     Dates: start: 20100120, end: 20100123
  7. TRAMAL LONG [Concomitant]
     Indication: PAIN
     Dosage: DOSAGE IS UNKNOWN, 1 IN DAY
     Route: 048
     Dates: start: 20100121, end: 20100121
  8. PRADAXA [Suspect]
     Indication: THROMBOSIS PROPHYLAXIS
     Route: 048
     Dates: start: 20100120
  9. DORMO-PUREN [Concomitant]
     Indication: INSOMNIA
     Dosage: DOSAGE UNKNOWN, 1 IN DAY
     Route: 048
     Dates: start: 20100121, end: 20100121
  10. OMEPRAZOL [Interacting]
     Indication: PROPHYLAXIS AGAINST GASTROINTESTINAL ULCER
     Route: 048
     Dates: end: 20100203
  11. PANTOZOL [Interacting]
     Indication: PROPHYLAXIS AGAINST GASTROINTESTINAL ULCER
     Route: 042
     Dates: start: 20100120, end: 20100120
  12. DIPIDOLOR [Concomitant]
     Indication: PAIN
     Route: 058
     Dates: start: 20100120, end: 20100120

REACTIONS (2)
  - PULMONARY EMBOLISM [None]
  - DRUG INTERACTION [None]
